FAERS Safety Report 21658691 (Version 2)
Quarter: 2022Q4

REPORT INFORMATION
  Report Type: Report from Study
  Country: CA (occurrence: CA)
  Receive Date: 20221129
  Receipt Date: 20221221
  Transmission Date: 20230113
  Serious: Yes (Other)
  Sender: FDA-Public Use
  Company Number: CA-GILEAD-2022-0595973

PATIENT
  Age: 66 Year
  Sex: Female

DRUGS (13)
  1. SACITUZUMAB GOVITECAN-HZIY [Suspect]
     Active Substance: SACITUZUMAB GOVITECAN-HZIY
     Indication: Triple negative breast cancer
     Dosage: 504 MG
     Route: 042
     Dates: start: 20220812
  2. SACITUZUMAB GOVITECAN-HZIY [Suspect]
     Active Substance: SACITUZUMAB GOVITECAN-HZIY
     Dosage: 444 MG
     Route: 042
     Dates: start: 20220906
  3. SACITUZUMAB GOVITECAN-HZIY [Suspect]
     Active Substance: SACITUZUMAB GOVITECAN-HZIY
     Dosage: CYCLE 2 , DAY 1
     Route: 042
     Dates: start: 20220916
  4. SACITUZUMAB GOVITECAN-HZIY [Suspect]
     Active Substance: SACITUZUMAB GOVITECAN-HZIY
     Dosage: 444 MG
     Route: 042
     Dates: start: 20220812
  5. SACITUZUMAB GOVITECAN-HZIY [Suspect]
     Active Substance: SACITUZUMAB GOVITECAN-HZIY
     Dosage: C8 CYCLE NOT REPORTED
     Route: 042
     Dates: start: 20221007
  6. SACITUZUMAB GOVITECAN-HZIY [Suspect]
     Active Substance: SACITUZUMAB GOVITECAN-HZIY
     Dosage: 481 MG
     Route: 042
     Dates: start: 20220812
  7. CYCLOPHOSPHAMIDE\EPIRUBICIN HYDROCHLORIDE\FLUOROURACIL [Concomitant]
     Active Substance: CYCLOPHOSPHAMIDE\EPIRUBICIN HYDROCHLORIDE\FLUOROURACIL
  8. PACLITAXEL [Concomitant]
     Active Substance: PACLITAXEL
  9. FLUOROURACIL [Concomitant]
     Active Substance: FLUOROURACIL
  10. CYCLOPHOSPHAMIDE [Concomitant]
     Active Substance: CYCLOPHOSPHAMIDE
     Dosage: IV
  11. CYCLOPHOSPHAMIDE [Concomitant]
     Active Substance: CYCLOPHOSPHAMIDE
     Dosage: IV
  12. EPIRUBICIN [Concomitant]
     Active Substance: EPIRUBICIN
  13. PACLITAXEL [Concomitant]
     Active Substance: PACLITAXEL

REACTIONS (5)
  - Disease progression [Unknown]
  - Feeling abnormal [Unknown]
  - Weight fluctuation [Unknown]
  - Malaise [Unknown]
  - Inappropriate schedule of product administration [Recovered/Resolved]

NARRATIVE: CASE EVENT DATE: 20220916
